FAERS Safety Report 8296783-3 (Version None)
Quarter: 2012Q2

REPORT INFORMATION
  Report Type: 
  Country: None (occurrence: None)
  Receive Date: 20120419
  Receipt Date: 20120412
  Transmission Date: 20120825
  Serious: Yes (Hospitalization)
  Sender: FDA-Public Use
  Company Number: US-BRISTOL-MYERS SQUIBB COMPANY-16447203

PATIENT
  Age: 78 Year
  Sex: Female

DRUGS (2)
  1. BMS754807 [Suspect]
     Indication: BREAST CANCER
     Dosage: INTER ON 05MAR12
     Route: 048
     Dates: start: 20120221, end: 20120305
  2. METFORMIN HCL [Suspect]
     Dates: start: 20120305, end: 20120308

REACTIONS (2)
  - NAUSEA [None]
  - DEHYDRATION [None]
